FAERS Safety Report 23276955 (Version 2)
Quarter: 2023Q4

REPORT INFORMATION
  Report Type: Spontaneous
  Country: RU (occurrence: RU)
  Receive Date: 20231208
  Receipt Date: 20231220
  Transmission Date: 20240110
  Serious: Yes (Other)
  Sender: FDA-Public Use
  Company Number: RU-002147023-NVSC2023RU258137

PATIENT
  Sex: Male

DRUGS (10)
  1. ZOLEDRONIC ACID [Suspect]
     Active Substance: ZOLEDRONIC ACID
     Indication: Hormone-dependent prostate cancer
     Dosage: ONCE IN 3-4 WEEKS
     Route: 065
     Dates: start: 20170921
  2. DEGARELIX [Concomitant]
     Active Substance: DEGARELIX
     Indication: Hormone therapy
     Dosage: FIRST DOSE 240 MG
     Route: 065
     Dates: start: 20170927
  3. DEGARELIX [Concomitant]
     Active Substance: DEGARELIX
     Indication: Hormone-dependent prostate cancer
     Dosage: 5 INJECTIONS 80 MG EACH
     Route: 065
  4. DOCETAXEL [Concomitant]
     Active Substance: DOCETAXEL\DOCETAXEL ANHYDROUS
     Indication: Hormone-dependent prostate cancer
     Dosage: 140 MG, Q3W, 6 CYCLES
     Route: 065
     Dates: start: 20170928
  5. RADIUM [Concomitant]
     Active Substance: RADIUM
     Indication: Hormone-dependent prostate cancer
     Dosage: 55 KBQ/KG
     Route: 065
     Dates: start: 20180417, end: 20180417
  6. RADIUM [Concomitant]
     Active Substance: RADIUM
     Dosage: 55 KBQ/KG
     Route: 065
     Dates: start: 20180515, end: 20180515
  7. RADIUM [Concomitant]
     Active Substance: RADIUM
     Dosage: 55 KBQ/KG
     Route: 065
     Dates: start: 20180614, end: 20180614
  8. RADIUM [Concomitant]
     Active Substance: RADIUM
     Dosage: 55 KBQ/KG
     Route: 065
     Dates: start: 20180710, end: 20180710
  9. RADIUM [Concomitant]
     Active Substance: RADIUM
     Dosage: 55 KBQ/KG
     Route: 065
     Dates: start: 201810, end: 201810
  10. RADIUM [Concomitant]
     Active Substance: RADIUM
     Dosage: 55 KBQ/KG
     Route: 065
     Dates: start: 201901, end: 201901

REACTIONS (2)
  - Osteonecrosis of jaw [Unknown]
  - Product use in unapproved indication [Unknown]

NARRATIVE: CASE EVENT DATE: 20181101
